FAERS Safety Report 6897104-0 (Version None)
Quarter: 2010Q3

REPORT INFORMATION
  Report Type: 
  Country: None (occurrence: None)
  Receive Date: 20100802
  Receipt Date: 20070407
  Transmission Date: 20110219
  Serious: No
  Sender: FDA-Public Use
  Company Number: US-PFIZER INC-2007028445

PATIENT
  Sex: Female
  Weight: 61.2 kg

DRUGS (6)
  1. LYRICA [Suspect]
     Indication: NEUROPATHY PERIPHERAL
     Dates: start: 20070407
  2. ASPIRINE [Concomitant]
  3. METOPROLOL [Concomitant]
  4. RANITIDINE [Concomitant]
  5. LIPITOR [Concomitant]
  6. VITAMINS [Concomitant]

REACTIONS (1)
  - DIZZINESS [None]
